FAERS Safety Report 5625083-2 (Version None)
Quarter: 2008Q1

REPORT INFORMATION
  Report Type: 
  Country: None (occurrence: None)
  Receive Date: 20080208
  Receipt Date: 20080128
  Transmission Date: 20080703
  Serious: Yes (Other)
  Sender: FDA-Public Use
  Company Number: 2008AP000311

PATIENT
  Age: 23 Year
  Sex: Male

DRUGS (6)
  1. PAROXETINE HCL [Suspect]
     Indication: DEPRESSION
     Dosage: PO, PO, 60 MG; PO; QD
     Route: 048
     Dates: end: 20040701
  2. PAROXETINE HCL [Suspect]
     Indication: DEPRESSION
     Dosage: PO, PO, 60 MG; PO; QD
     Route: 048
     Dates: start: 20000331
  3. PAROXETINE HCL [Suspect]
     Indication: DEPRESSION
     Dosage: PO, PO, 60 MG; PO; QD
     Route: 048
     Dates: start: 20030301
  4. CARBAMAZEPINE [Concomitant]
  5. DIAZEPAM [Concomitant]
  6. CLOMIPRAMINE HCL [Concomitant]

REACTIONS (17)
  - AGGRESSION [None]
  - AGITATION [None]
  - AMNESIA [None]
  - ANXIETY [None]
  - CONDITION AGGRAVATED [None]
  - DEPRESSION [None]
  - DISTURBANCE IN ATTENTION [None]
  - DRUG INEFFECTIVE [None]
  - DRUG WITHDRAWAL SYNDROME [None]
  - LETHARGY [None]
  - MALAISE [None]
  - NIGHTMARE [None]
  - PANIC ATTACK [None]
  - PHOBIA [None]
  - SLEEP DISORDER [None]
  - SUICIDAL IDEATION [None]
  - WEIGHT DECREASED [None]
